FAERS Safety Report 5090173-2 (Version None)
Quarter: 2006Q3

REPORT INFORMATION
  Report Type: 
  Country: None (occurrence: None)
  Receive Date: 20060823
  Receipt Date: 20060811
  Transmission Date: 20061208
  Serious: Yes (Death, Other)
  Sender: FDA-Public Use
  Company Number: T200600887

PATIENT
  Age: 36 Year
  Sex: Female

DRUGS (14)
  1. METHADOSE ORAL CONCENTRATE (METHADONE HYDROCHLORIDE) SYRUP, 10MG/ML [Suspect]
     Indication: DRUG DEPENDENCE
     Dosage: 140 MG, QD, ORAL
     Route: 048
     Dates: start: 20060215, end: 20060428
  2. DIAZEPAM [Concomitant]
  3. LEVOXYL [Concomitant]
  4. METFORMIN (METFORMIN) [Concomitant]
  5. BUDEPRION (BUPROPION HYDROCHLORIDE) [Concomitant]
  6. ATUSS HD (PHENYLEPHRINE HYDROCHLORIDE, HYDROCODONE BITARTRATE, CHLORPH [Concomitant]
  7. AVELOX [Concomitant]
  8. GABAPENTIN [Concomitant]
  9. PERCOCET /00867901/(OXYCODONE HYDROCHLORIDE, PARACETAMOL) [Concomitant]
  10. IMIPRAMINE [Concomitant]
  11. TRAZODONE HCL [Concomitant]
  12. SEROQUEL /01270901/(QUETIAPINE) [Concomitant]
  13. ZYRTEC /00994302/(CETIRIZINE HYDROCHLORIDE) [Concomitant]
  14. SINGULAIR [Concomitant]

REACTIONS (10)
  - ABNORMAL BEHAVIOUR [None]
  - BLOOD UREA DECREASED [None]
  - CARBON DIOXIDE DECREASED [None]
  - CONVULSION [None]
  - DYSARTHRIA [None]
  - HEPATIC STEATOSIS [None]
  - ROAD TRAFFIC ACCIDENT [None]
  - SUICIDAL BEHAVIOUR [None]
  - SUICIDAL IDEATION [None]
  - THERAPEUTIC AGENT TOXICITY [None]
